FAERS Safety Report 24956517 (Version 1)
Quarter: 2025Q1

REPORT INFORMATION
  Report Type: Spontaneous
  Country: US (occurrence: US)
  Receive Date: 20250211
  Receipt Date: 20250211
  Transmission Date: 20250409
  Serious: Yes (Death)
  Sender: JAZZ
  Company Number: US-JAZZ PHARMACEUTICALS-2025-US-003451

PATIENT

DRUGS (1)
  1. ZIIHERA [Suspect]
     Active Substance: ZANIDATAMAB-HRII
     Indication: Product used for unknown indication

REACTIONS (1)
  - Disease progression [Fatal]
